FAERS Safety Report 10389328 (Version 3)
Quarter: 2015Q1

REPORT INFORMATION
  Report Type: Report from Study
  Country: US (occurrence: US)
  Receive Date: 20140818
  Receipt Date: 20150102
  Transmission Date: 20150720
  Serious: Yes (Other)
  Sender: FDA-Public Use
  Company Number: US-AMGEN INC.-USASP2014061677

PATIENT
  Age: 43 Year
  Sex: Female

DRUGS (1)
  1. ENBREL [Suspect]
     Active Substance: ETANERCEPT
     Indication: RHEUMATOID ARTHRITIS
     Dosage: 50 MG, QWK
     Route: 065
     Dates: start: 20140801, end: 201408

REACTIONS (11)
  - Gait disturbance [Not Recovered/Not Resolved]
  - Eye haemorrhage [Not Recovered/Not Resolved]
  - Gastric disorder [Not Recovered/Not Resolved]
  - Tremor [Not Recovered/Not Resolved]
  - Hyperhidrosis [Not Recovered/Not Resolved]
  - Mobility decreased [Not Recovered/Not Resolved]
  - Abdominal pain upper [Not Recovered/Not Resolved]
  - Drug hypersensitivity [Unknown]
  - Injection site urticaria [Recovered/Resolved]
  - Contusion [Not Recovered/Not Resolved]
  - Injection site recall reaction [Not Recovered/Not Resolved]

NARRATIVE: CASE EVENT DATE: 2014
